FAERS Safety Report 22358467 (Version 1)
Quarter: 2023Q2

REPORT INFORMATION
  Report Type: Spontaneous
  Country: DE (occurrence: DE)
  Receive Date: 20230524
  Receipt Date: 20230524
  Transmission Date: 20230722
  Serious: Yes (Life-Threatening, Other)
  Sender: FDA-Public Use
  Company Number: None

PATIENT
  Age: 66 Year
  Sex: Female
  Weight: 62 kg

DRUGS (2)
  1. OLANZAPINE [Suspect]
     Active Substance: OLANZAPINE
     Indication: Psychotic disorder
     Dosage: 30 MG, (1/2 YEARS TAPERED OFF,REDUCED BY 0.625 MG EVERY 6 WEEKS AND DISCONTINUED 0.625 MG)
     Route: 065
     Dates: start: 202103, end: 20230313
  2. OLANZAPINE [Suspect]
     Active Substance: OLANZAPINE
     Indication: Anxiety disorder

REACTIONS (21)
  - Porphyria [Recovered/Resolved with Sequelae]
  - Polycythaemia vera [Recovered/Resolved with Sequelae]
  - Blood pressure increased [Unknown]
  - Ascites [Unknown]
  - Angina pectoris [Unknown]
  - Hepatomegaly [Unknown]
  - Depression [Unknown]
  - Splenomegaly [Unknown]
  - Withdrawal syndrome [Unknown]
  - Vision blurred [Unknown]
  - Ill-defined disorder [Unknown]
  - Decreased appetite [Unknown]
  - Hyperhidrosis [Unknown]
  - Palpitations [Unknown]
  - Disturbance in attention [Unknown]
  - Janus kinase 2 mutation [Unknown]
  - Insomnia [Unknown]
  - Dizziness [Unknown]
  - Somnolence [Unknown]
  - Akathisia [Unknown]
  - Nausea [Unknown]
